FAERS Safety Report 9721501 (Version 1)
Quarter: 2013Q4

REPORT INFORMATION
  Report Type: Spontaneous
  Country: US (occurrence: US)
  Receive Date: 20131130
  Receipt Date: 20131130
  Transmission Date: 20140711
  Serious: Yes (Other)
  Sender: FDA-Public Use
  Company Number: US-AMGEN-USASP2013083171

PATIENT
  Age: 72 Year
  Sex: Female

DRUGS (3)
  1. PROLIA [Suspect]
     Indication: OSTEOPOROSIS POSTMENOPAUSAL
     Dosage: UNK
     Route: 065
     Dates: start: 2011
  2. CALCIUM [Concomitant]
     Dosage: 400 OR 500 MG DOSES THROUGHOUT THE DAY
  3. VITAMIN D3 [Concomitant]

REACTIONS (6)
  - Thoracic vertebral fracture [Unknown]
  - Urinary tract infection [Unknown]
  - Musculoskeletal chest pain [Unknown]
  - Drug ineffective [Unknown]
  - Mental impairment [Unknown]
  - Cough [Unknown]
